FAERS Safety Report 17498431 (Version 1)
Quarter: 2020Q1

REPORT INFORMATION
  Report Type: Spontaneous
  Country: JP (occurrence: JP)
  Receive Date: 20200304
  Receipt Date: 20200304
  Transmission Date: 20200409
  Serious: Yes (Hospitalization, Other)
  Sender: FDA-Public Use
  Company Number: JP-FERRINGPH-2020FE01359

PATIENT
  Age: 86 Year
  Sex: Female

DRUGS (15)
  1. MAGMITT [Concomitant]
     Active Substance: MAGNESIUM OXIDE
     Indication: LAXATIVE SUPPORTIVE CARE
     Dosage: 660 MG, 3 TIMES DAILY
     Route: 048
     Dates: start: 20200203, end: 20200219
  2. ALINAMIN F [FURSULTIAMINE HYDROCHLORIDE] [Concomitant]
     Dosage: UNK
     Route: 048
     Dates: start: 20191219
  3. PICOPREP [Suspect]
     Active Substance: ANHYDROUS CITRIC ACID\MAGNESIUM OXIDE\SODIUM PICOSULFATE
     Indication: BOWEL PREPARATION
     Dosage: 1 PACKET 2 TIMES/DAY
     Route: 048
     Dates: start: 20200212, end: 20200212
  4. LIPIDIL [Concomitant]
     Active Substance: FENOFIBRATE
     Indication: HYPERLIPIDAEMIA
     Dosage: 80 MG, 1 TIME DAILY
     Route: 048
     Dates: start: 20191219
  5. HYALONSAN [Concomitant]
     Active Substance: HYALURONATE SODIUM
     Indication: PRURITUS
     Dosage: UNK
     Route: 047
     Dates: start: 20191219
  6. ZOLPIDEM TARTRATE. [Concomitant]
     Active Substance: ZOLPIDEM TARTRATE
     Indication: INSOMNIA
     Dosage: 10 MG, 1 TIME DAILY
     Route: 048
     Dates: start: 20191219
  7. MOSAPRIDE CITRATE DIHYDRATE [Concomitant]
     Active Substance: MOSAPRIDE CITRATE DIHYDRATE
     Indication: GASTRITIS
     Dosage: 5 MG, 3 TIMES DAILY
     Route: 048
     Dates: start: 20191219
  8. NEO-MEDROL [METHYLPREDNISOLONE ACETATE;NEOMYCIN SULFATE] [Concomitant]
     Indication: PRURITUS
     Dosage: 1 TIME DAILY
     Route: 062
     Dates: start: 20191219
  9. NEXIUM [Concomitant]
     Active Substance: ESOMEPRAZOLE MAGNESIUM
     Indication: GASTRIC ULCER
     Dosage: 20 MG, 2 TIMES DAILY
     Route: 048
     Dates: start: 20191219
  10. ALESION [Concomitant]
     Active Substance: EPINASTINE HYDROCHLORIDE
     Indication: PRURITUS
     Dosage: UNK
     Route: 047
     Dates: start: 20191219
  11. SENNOSIDE [SENNOSIDE A+B] [Concomitant]
     Active Substance: SENNOSIDES A AND B
     Indication: LAXATIVE SUPPORTIVE CARE
     Dosage: 24 MG, 1 TIME DAILY
     Route: 048
     Dates: start: 20200212, end: 20200212
  12. FLUMETHOLON [Concomitant]
     Active Substance: FLUOROMETHOLONE
     Indication: PRURITUS
     Dosage: UNK
     Route: 047
     Dates: start: 20191219
  13. LEVOFLOXACIN HEMIHYDRATE [Concomitant]
     Active Substance: LEVOFLOXACIN
     Indication: PRURITUS
     Dosage: UNK
     Route: 047
     Dates: start: 20191219
  14. ANTIANEMIC PREPARATIONS [Concomitant]
     Indication: ANAEMIA
     Dosage: 50 MG, 3 TIMES DAILY
     Route: 048
     Dates: start: 20191219
  15. SOFTEAR [Concomitant]
     Active Substance: CYANOCOBALAMIN
     Indication: PRURITUS
     Dosage: UNK
     Route: 047
     Dates: start: 20191219

REACTIONS (5)
  - Depressed level of consciousness [Recovered/Resolved]
  - Vomiting [Recovered/Resolved]
  - Osmotic demyelination syndrome [Recovered/Resolved]
  - Seizure [Recovered/Resolved]
  - Hyponatraemia [Recovered/Resolved]

NARRATIVE: CASE EVENT DATE: 20200212
